FAERS Safety Report 6295068-4 (Version None)
Quarter: 2009Q3

REPORT INFORMATION
  Report Type: 
  Country: None (occurrence: None)
  Receive Date: 20090803
  Receipt Date: 20090726
  Transmission Date: 20100115
  Serious: Yes (Other)
  Sender: FDA-Public Use
  Company Number: AU-PFIZER INC-2009226162

PATIENT
  Age: 58 Year

DRUGS (1)
  1. CELEBREX [Suspect]
     Indication: ANKLE FRACTURE
     Dosage: UNK
     Dates: start: 20070801, end: 20090501

REACTIONS (7)
  - ARTHROPATHY [None]
  - BACK DISORDER [None]
  - CYSTITIS [None]
  - DIARRHOEA [None]
  - DYSPNOEA [None]
  - KIDNEY INFECTION [None]
  - MUSCULOSKELETAL STIFFNESS [None]
